FAERS Safety Report 14407415 (Version 1)
Quarter: 2018Q1

REPORT INFORMATION
  Report Type: Spontaneous
  Country: DE (occurrence: DE)
  Receive Date: 20180118
  Receipt Date: 20180118
  Transmission Date: 20180509
  Serious: Yes (Other)
  Sender: FDA-Public Use
  Company Number: DE-BIOGEN-2018BI00511978

PATIENT
  Sex: Male
  Weight: 60 kg

DRUGS (11)
  1. FAMPYRA [Suspect]
     Active Substance: DALFAMPRIDINE
     Indication: PRODUCT USED FOR UNKNOWN INDICATION
     Route: 065
  2. ZOFRAN [Concomitant]
     Active Substance: ONDANSETRON HYDROCHLORIDE
     Indication: PRODUCT USED FOR UNKNOWN INDICATION
     Route: 065
  3. PREDNISOLON [Concomitant]
     Active Substance: PREDNISOLONE
     Indication: PRODUCT USED FOR UNKNOWN INDICATION
     Route: 065
     Dates: start: 20151219, end: 20151220
  4. MIRTAZAPIN [Concomitant]
     Active Substance: MIRTAZAPINE
     Indication: PRODUCT USED FOR UNKNOWN INDICATION
     Route: 065
  5. RITUXIMAB. [Concomitant]
     Active Substance: RITUXIMAB
     Indication: MULTIPLE SCLEROSIS
     Dosage: PRESENTLY THIRD ADMINISTRATION
     Route: 065
     Dates: start: 201607
  6. IBRUPROFEN [Concomitant]
     Active Substance: IBUPROFEN
     Indication: PRODUCT USED FOR UNKNOWN INDICATION
     Dosage: ON REQUEST
     Route: 065
  7. TYSABRI [Suspect]
     Active Substance: NATALIZUMAB
     Indication: MULTIPLE SCLEROSIS
     Dosage: TOTAL OF 57 INFUSIONS
     Route: 042
     Dates: start: 20090417, end: 201410
  8. MITOXANTRONE [Concomitant]
     Active Substance: MITOXANTRONE HYDROCHLORIDE
     Indication: MULTIPLE SCLEROSIS
     Dosage: 4 ADMINISTRATIONS; ADMINISTRATION OF 12MG/M2 BSA; CUMULATIVE TOTAL DOSE 12 MG/M2 BSA; 10MG/QM BSA...
     Route: 065
     Dates: start: 201411, end: 201502
  9. CORTISONE [Concomitant]
     Active Substance: CORTISONE\HYDROCORTISONE
     Indication: PRODUCT USED FOR UNKNOWN INDICATION
     Route: 065
  10. BACLOFEN. [Concomitant]
     Active Substance: BACLOFEN
     Indication: PRODUCT USED FOR UNKNOWN INDICATION
     Dosage: 2 DOSES AT NIGHT
     Route: 065
  11. SATIVEX [Concomitant]
     Active Substance: NABIXIMOLS
     Indication: SLEEP DISORDER
     Dosage: 4 PUFFS
     Route: 065

REACTIONS (2)
  - Blindness unilateral [Unknown]
  - Optic neuritis [Recovered/Resolved]
